FAERS Safety Report 8124645-0 (Version None)
Quarter: 2012Q1

REPORT INFORMATION
  Report Type: 
  Country: None (occurrence: None)
  Receive Date: 20120209
  Receipt Date: 20120209
  Transmission Date: 20120608
  Serious: Yes (Hospitalization, Other)
  Sender: FDA-Public Use
  Company Number: None

PATIENT
  Age: 84 Year
  Sex: Male
  Weight: 70.306 kg

DRUGS (4)
  1. PRADAXA [Suspect]
     Indication: ATRIAL FIBRILLATION
     Dosage: 150 MG
     Route: 048
  2. NEXIUM [Concomitant]
  3. SOTALOL HCL [Concomitant]
  4. CITALOPRAM HYDROBROMIDE [Concomitant]

REACTIONS (3)
  - MENTAL STATUS CHANGES [None]
  - SUBDURAL HAEMATOMA [None]
  - GAIT DISTURBANCE [None]
